FAERS Safety Report 8005524-6 (Version None)
Quarter: 2011Q4

REPORT INFORMATION
  Report Type: 
  Country: None (occurrence: None)
  Receive Date: 20111223
  Receipt Date: 20101014
  Transmission Date: 20120403
  Serious: Yes (Other)
  Sender: FDA-Public Use
  Company Number: GB-PFIZER INC-2011308330

PATIENT
  Age: 16 Year
  Sex: Male

DRUGS (1)
  1. MOROCTOCOG ALFA [Suspect]
     Indication: HAEMOPHILIA
     Dosage: PROPHYLAXIS (EVERY MONDAY, WEDNESDAY AND FRIDAY) AT UNKNOWN DOSE

REACTIONS (4)
  - NAUSEA [None]
  - HAEMORRHAGE [None]
  - ARTHRALGIA [None]
  - HAEMARTHROSIS [None]
